FAERS Safety Report 24725543 (Version 1)
Quarter: 2024Q4

REPORT INFORMATION
  Report Type: Spontaneous
  Country: US (occurrence: US)
  Receive Date: 20241212
  Receipt Date: 20241212
  Transmission Date: 20250114
  Serious: Yes (Hospitalization, Other)
  Sender: SANOFI AVENTIS
  Company Number: US-SA-2024SA366151

PATIENT
  Sex: Female
  Weight: 133.27 kg

DRUGS (16)
  1. DUPIXENT [Suspect]
     Active Substance: DUPILUMAB
     Indication: Asthma
     Dosage: 300 MG, QOW
     Route: 058
  2. ASMANEX HFA [Concomitant]
     Active Substance: MOMETASONE FUROATE
  3. ZINC [Concomitant]
     Active Substance: ZINC
  4. MELOXICAM [Concomitant]
     Active Substance: MELOXICAM
  5. TRETINOIN [Concomitant]
     Active Substance: TRETINOIN
  6. PROAIR DIGIHALER [Concomitant]
     Active Substance: ALBUTEROL SULFATE
  7. MODAFINIL [Concomitant]
     Active Substance: MODAFINIL
  8. CETIRIZINE HCL [Concomitant]
     Active Substance: CETIRIZINE HYDROCHLORIDE
  9. VITAMINS [Concomitant]
     Active Substance: VITAMINS
  10. CICLOPIROX [Concomitant]
     Active Substance: CICLOPIROX
  11. ONDANSETRON HYDROCHLORIDE [Concomitant]
     Active Substance: ONDANSETRON HYDROCHLORIDE
  12. VITAMIN C [Concomitant]
     Active Substance: ASCORBIC ACID
  13. DAPSONE [Concomitant]
     Active Substance: DAPSONE
  14. LINZESS [Concomitant]
     Active Substance: LINACLOTIDE
  15. PHENTERMINE HYDROCHLORIDE [Concomitant]
     Active Substance: PHENTERMINE HYDROCHLORIDE
  16. BETAMETHASONE DIPROPIONATE AUGMENTED [Concomitant]
     Active Substance: BETAMETHASONE DIPROPIONATE

REACTIONS (2)
  - Atypical pneumonia [Unknown]
  - Dyspnoea [Unknown]
